FAERS Safety Report 7224556-9 (Version None)
Quarter: 2011Q1

REPORT INFORMATION
  Report Type: 
  Country: None (occurrence: None)
  Receive Date: 20110113
  Receipt Date: 20101116
  Transmission Date: 20110831
  Serious: No
  Sender: FDA-Public Use
  Company Number: US-BAYER-2010-005467

PATIENT
  Sex: Female

DRUGS (9)
  1. ALEVE (CAPLET) [Suspect]
     Indication: ARTHRALGIA
  2. PREVACID [Concomitant]
  3. LEVOXYL [Concomitant]
  4. ACETAMINOPHEN [Concomitant]
  5. ULTIMATE MALE FUEL [Concomitant]
  6. COD-LIVER OIL [Concomitant]
  7. ALEVE (CAPLET) [Suspect]
     Indication: ARTHRITIS
     Dosage: UNK
     Route: 048
     Dates: start: 20100101, end: 20101113
  8. ALEVE (CAPLET) [Suspect]
     Indication: SINUS HEADACHE
  9. ZYRTEC [Concomitant]

REACTIONS (5)
  - ABDOMINAL DISTENSION [None]
  - DYSPEPSIA [None]
  - HEADACHE [None]
  - FLATULENCE [None]
  - OROPHARYNGEAL DISCOMFORT [None]
